FAERS Safety Report 17179700 (Version 1)
Quarter: 2019Q4

REPORT INFORMATION
  Report Type: Spontaneous
  Country: US (occurrence: US)
  Receive Date: 20191219
  Receipt Date: 20191219
  Transmission Date: 20200122
  Serious: No
  Sender: FDA-Public Use
  Company Number: NVSC2019US072664

PATIENT
  Sex: Male

DRUGS (1)
  1. RIVASTIGMINE. [Suspect]
     Active Substance: RIVASTIGMINE
     Indication: PRODUCT USED FOR UNKNOWN INDICATION
     Dosage: 9 MG, QD (4.6 MG, QD PATCH 5 (CM2))
     Route: 062

REACTIONS (2)
  - Application site discolouration [Unknown]
  - Application site pruritus [Unknown]
